FAERS Safety Report 5389656-7 (Version None)
Quarter: 2007Q3

REPORT INFORMATION
  Report Type: 
  Country: None (occurrence: None)
  Receive Date: 20070717
  Receipt Date: 20070712
  Transmission Date: 20080115
  Serious: Yes (Other)
  Sender: FDA-Public Use
  Company Number: MY-SHR-MY-2007-024865

PATIENT
  Age: 75 Year
  Sex: Female

DRUGS (2)
  1. ULTRAVIST 370 [Suspect]
     Indication: COMPUTERISED TOMOGRAM
     Dosage: 100 ML, 1 DOSE
     Route: 042
     Dates: start: 20070702, end: 20070702
  2. SODIUM CHLORIDE [Concomitant]
     Indication: COMPUTERISED TOMOGRAM
     Dosage: 75 MG, 1 DOSE
     Route: 042
     Dates: start: 20070702, end: 20070702

REACTIONS (1)
  - APHONIA [None]
